FAERS Safety Report 16894600 (Version 7)
Quarter: 2020Q1

REPORT INFORMATION
  Report Type: Spontaneous
  Country: US (occurrence: US)
  Receive Date: 20191008
  Receipt Date: 20200117
  Transmission Date: 20200409
  Serious: No
  Sender: FDA-Public Use
  Company Number: US-PFIZER INC-2019430577

PATIENT
  Age: 68 Year
  Sex: Female
  Weight: 70.3 kg

DRUGS (9)
  1. PAXIL [Concomitant]
     Active Substance: PAROXETINE HYDROCHLORIDE
     Indication: DEPRESSION
     Dosage: 20 MG, DAILY
     Dates: start: 1995
  2. ESTRADIOL. [Suspect]
     Active Substance: ESTRADIOL
     Dosage: 10 MG, DAILY
     Dates: start: 2019
  3. VITAMIN E [Concomitant]
     Active Substance: .ALPHA.-TOCOPHEROL
     Dosage: 400 IU, DAILY
     Dates: start: 1990
  4. OYSTER SHELL CALCIUM [Concomitant]
     Active Substance: CALCIUM
     Dosage: 500 MG, DAILY
     Dates: start: 1986
  5. VITAMIN B-COMPLEX [Concomitant]
     Active Substance: DEXPANTHENOL\NIACINAMIDE\PYRIDOXINE HYDROCHLORIDE\RIBOFLAVIN 5^-PHOSPHATE SODIUM\THIAMINE HYDROCHLORIDE
     Dosage: 1 DF, DAILY [B COMPLEX (100) 1 PILL/DAY]
     Dates: start: 1986
  6. ESTRADIOL. [Suspect]
     Active Substance: ESTRADIOL
     Indication: HORMONE REPLACEMENT THERAPY
     Dosage: 1 MG, 1X/DAY
     Dates: start: 201903
  7. VITAMIN D3 [Concomitant]
     Active Substance: CHOLECALCIFEROL
     Dosage: 1000 IU, DAILY
     Dates: start: 2015
  8. ESTRADIOL. [Suspect]
     Active Substance: ESTRADIOL
     Dosage: 1 G, DAILY
     Dates: start: 201904
  9. BUSPAR [Concomitant]
     Active Substance: BUSPIRONE HYDROCHLORIDE
     Indication: ANXIETY
     Dosage: 7.5 MG, 2X/DAY
     Dates: start: 2004

REACTIONS (7)
  - Breast pain [Recovered/Resolved]
  - Hyperhidrosis [Not Recovered/Not Resolved]
  - Off label use [Not Recovered/Not Resolved]
  - Irritability [Not Recovered/Not Resolved]
  - Temperature intolerance [Not Recovered/Not Resolved]
  - Mood swings [Not Recovered/Not Resolved]
  - Hot flush [Not Recovered/Not Resolved]

NARRATIVE: CASE EVENT DATE: 201903
